FAERS Safety Report 24262039 (Version 1)
Quarter: 2024Q3

REPORT INFORMATION
  Report Type: Spontaneous
  Country: US (occurrence: US)
  Receive Date: 20240829
  Receipt Date: 20240829
  Transmission Date: 20241017
  Serious: No
  Sender: BOSTON SCIENTIFIC
  Company Number: US-BSC-2023000077

PATIENT
  Age: 61 Year
  Sex: Female

DRUGS (2)
  1. VARITHENA [Suspect]
     Active Substance: POLIDOCANOL
     Indication: Varicose vein
     Dosage: 4 TO 5 INJECTIONS IN RIGHT LEG OF UNKNOWN VOLUME AND LOCATION.
     Dates: start: 2023
  2. VARITHENA [Suspect]
     Active Substance: POLIDOCANOL
     Indication: Varicose vein
     Dosage: 1 INJECTION IN LEFT LEG OF UNKNOWN VOLUME AND LOCATION.
     Dates: start: 2023

REACTIONS (1)
  - Drug ineffective [Unknown]
